FAERS Safety Report 25223869 (Version 7)
Quarter: 2025Q3

REPORT INFORMATION
  Report Type: Report from Study
  Country: US (occurrence: US)
  Receive Date: 20250422
  Receipt Date: 20250709
  Transmission Date: 20251020
  Serious: No
  Sender: SANDOZ
  Company Number: US-SANDOZ-SDZ2025US024273

PATIENT
  Age: 12 Year
  Sex: Male

DRUGS (10)
  1. OMNITROPE [Suspect]
     Active Substance: SOMATROPIN
     Indication: Short stature
     Dosage: 2 MG, QD
     Route: 058
  2. OMNITROPE [Suspect]
     Active Substance: SOMATROPIN
     Indication: Short stature
     Dosage: 2 MG, QD
     Route: 058
  3. OMNITROPE [Suspect]
     Active Substance: SOMATROPIN
     Dosage: 2 MG, QD
     Route: 058
     Dates: start: 20250210
  4. OMNITROPE [Suspect]
     Active Substance: SOMATROPIN
     Dosage: 2 MG, QD
     Route: 058
     Dates: start: 20250210
  5. OMNITROPE [Suspect]
     Active Substance: SOMATROPIN
     Dosage: 40 IU, QD STRENGTH: 5 MG/ML
     Route: 058
     Dates: end: 20250527
  6. OMNITROPE [Suspect]
     Active Substance: SOMATROPIN
     Dosage: 40 IU, QD STRENGTH: 5 MG/ML
     Route: 058
     Dates: end: 20250527
  7. OMNITROPE [Suspect]
     Active Substance: SOMATROPIN
     Dosage: 0.40 ML, QD
     Route: 058
  8. OMNITROPE [Suspect]
     Active Substance: SOMATROPIN
     Dosage: 0.40 ML, QD
     Route: 058
  9. OMNITROPE [Suspect]
     Active Substance: SOMATROPIN
     Route: 058
  10. OMNITROPE [Suspect]
     Active Substance: SOMATROPIN
     Route: 058

REACTIONS (11)
  - Injection site pain [Unknown]
  - Injection site haemorrhage [Unknown]
  - Incorrect route of product administration [Unknown]
  - Incorrect dose administered [Unknown]
  - Wrong technique in device usage process [Unknown]
  - Device difficult to use [Unknown]
  - Device use error [Unknown]
  - Device mechanical issue [Unknown]
  - Device leakage [Unknown]
  - Needle issue [Unknown]
  - Product packaging issue [Unknown]

NARRATIVE: CASE EVENT DATE: 20250210
